FAERS Safety Report 7878820-0 (Version None)
Quarter: 2011Q4

REPORT INFORMATION
  Report Type: 
  Country: None (occurrence: None)
  Receive Date: 20111028
  Receipt Date: 20111020
  Transmission Date: 20120403
  Serious: Yes (Other)
  Sender: FDA-Public Use
  Company Number: 2011AP002233

PATIENT
  Age: 61 Year
  Sex: Female

DRUGS (4)
  1. INFLUENZA VIRUS (INFLUENZA VACCINE) [Concomitant]
  2. LANSOPRAZOLE [Concomitant]
  3. AMLODIPINE [Suspect]
     Dosage: 5 MG
     Dates: start: 20090706, end: 20110920
  4. PREMARIN [Concomitant]

REACTIONS (1)
  - GINGIVAL ATROPHY [None]
